FAERS Safety Report 15007558 (Version 3)
Quarter: 2018Q3

REPORT INFORMATION
  Report Type: Report from Study
  Country: US (occurrence: US)
  Receive Date: 20180613
  Receipt Date: 20180718
  Transmission Date: 20181010
  Serious: Yes (Life-Threatening, Hospitalization)
  Sender: FDA-Public Use
  Company Number: US-009507513-1804USA000648

PATIENT
  Age: 61 Year
  Sex: Male
  Weight: 118.6 kg

DRUGS (17)
  1. CARBOPLATIN. [Suspect]
     Active Substance: CARBOPLATIN
     Indication: TRANSITIONAL CELL CARCINOMA
     Dosage: AUC 5 OR AUC 4.5, Q3W(DAY 1 OR 2 OF EACH THREE WEEK CYCLE)
     Route: 042
     Dates: start: 20180307, end: 20180307
  2. ATENOLOL. [Concomitant]
     Active Substance: ATENOLOL
     Indication: HYPERTENSION
     Dosage: 25 MG, QD
     Route: 048
     Dates: start: 201603
  3. ACETAMINOPHEN (+) HYDROCODONE BITARTRATE [Concomitant]
     Active Substance: ACETAMINOPHEN\HYDROCODONE BITARTRATE
     Indication: BACK PAIN
     Dosage: TOTAL DAILY DOSE: 5 MG; FREQUENCY: OTHER
     Route: 048
     Dates: start: 20170616
  4. CARBOPLATIN. [Suspect]
     Active Substance: CARBOPLATIN
     Dosage: AUC 5 OR AUC 4.5, Q3W(DAY 1 OR 2 OF EACH THREE WEEK CYCLE)
     Route: 042
     Dates: start: 20180611
  5. CALCIUM CARBONATE. [Concomitant]
     Active Substance: CALCIUM CARBONATE
     Indication: ROUTINE HEALTH MAINTENANCE
     Dosage: TOTAL DAILY DOSE: 1000 MG
     Route: 048
     Dates: start: 20170616
  6. GEMCITABINE [Suspect]
     Active Substance: GEMCITABINE\GEMCITABINE HYDROCHLORIDE
     Dosage: 1000 MG/M2, DAY 1 AND 8 OF EACH THREE WEEK CYCLE
     Route: 042
     Dates: start: 20180518, end: 20180529
  7. LANTUS [Concomitant]
     Active Substance: INSULIN GLARGINE
     Indication: DIABETES MELLITUS
     Dosage: 16 IU, QD
     Route: 058
     Dates: start: 20170227
  8. PROCHLORPERAZINE. [Concomitant]
     Active Substance: PROCHLORPERAZINE
     Indication: PREMEDICATION
     Dosage: 10 MG, ONCE
     Dates: start: 20180316, end: 20180316
  9. DEXAMETHASONE. [Concomitant]
     Active Substance: DEXAMETHASONE
     Indication: PREMEDICATION
     Dosage: 12 MG, ONCE
     Route: 048
     Dates: start: 20180330, end: 20180330
  10. GEMCITABINE [Suspect]
     Active Substance: GEMCITABINE\GEMCITABINE HYDROCHLORIDE
     Dosage: 1000 MG/M2, DAY 1 AND 8 OF EACH THREE WEEK CYCLE
     Route: 042
     Dates: start: 20180406, end: 20180413
  11. GEMCITABINE [Suspect]
     Active Substance: GEMCITABINE\GEMCITABINE HYDROCHLORIDE
     Dosage: 1000 MG/M2, DAY 1 AND 8 OF EACH THREE WEEK CYCLE
     Route: 042
     Dates: start: 20180611
  12. CARBOPLATIN. [Suspect]
     Active Substance: CARBOPLATIN
     Dosage: AUC 5 OR AUC 4.5, Q3W(DAY 1 OR 2 OF EACH THREE WEEK CYCLE)
     Route: 042
     Dates: start: 20180406, end: 20180406
  13. ONDANSETRON [Concomitant]
     Active Substance: ONDANSETRON
     Indication: PREMEDICATION
     Dosage: 16 MG, QD
     Route: 048
     Dates: start: 20180330, end: 20180330
  14. EMEND (FOSAPREPITANT DIMEGLUMINE) [Suspect]
     Active Substance: FOSAPREPITANT DIMEGLUMINE
     Indication: PREMEDICATION
     Dosage: 150 MG, ONCE
     Route: 042
     Dates: start: 20180330, end: 20180330
  15. JANUVIA [Concomitant]
     Active Substance: SITAGLIPTIN PHOSPHATE
     Indication: DIABETES MELLITUS
     Dosage: 100 MG, QD
     Route: 048
     Dates: start: 20170227
  16. GEMCITABINE [Suspect]
     Active Substance: GEMCITABINE\GEMCITABINE HYDROCHLORIDE
     Indication: TRANSITIONAL CELL CARCINOMA
     Dosage: 1000 MG/M2, DAY 1 AND 8 OF EACH THREE WEEK CYCLE
     Route: 042
     Dates: start: 20180307, end: 20180316
  17. CARBOPLATIN. [Suspect]
     Active Substance: CARBOPLATIN
     Dosage: AUC 5 OR AUC 4.5, Q3W(DAY 1 OR 2 OF EACH THREE WEEK CYCLE)
     Route: 042
     Dates: start: 20180518, end: 20180518

REACTIONS (3)
  - Pulmonary thrombosis [Recovered/Resolved]
  - Anaphylactic reaction [Recovered/Resolved]
  - Sepsis [Recovered/Resolved]

NARRATIVE: CASE EVENT DATE: 20180330
